FAERS Safety Report 16170454 (Version 1)
Quarter: 2019Q2

REPORT INFORMATION
  Report Type: Spontaneous
  Country: GB (occurrence: GB)
  Receive Date: 20190408
  Receipt Date: 20190408
  Transmission Date: 20190711
  Serious: Yes (Other)
  Sender: FDA-Public Use
  Company Number: GB-LEO PHARMA-317903

PATIENT
  Age: 14 Year
  Sex: Male
  Weight: 46.71 kg

DRUGS (5)
  1. FUCIDIN H [Concomitant]
     Indication: PRODUCT USED FOR UNKNOWN INDICATION
  2. DANDRAZOL [Concomitant]
     Indication: PRODUCT USED FOR UNKNOWN INDICATION
  3. CETRABEN [Concomitant]
     Active Substance: PARAFFIN
     Indication: PRODUCT USED FOR UNKNOWN INDICATION
  4. FEXOFENADINE HYDROCHLORIDE. [Concomitant]
     Active Substance: FEXOFENADINE HYDROCHLORIDE
     Indication: PRODUCT USED FOR UNKNOWN INDICATION
  5. PROTOPIC [Suspect]
     Active Substance: TACROLIMUS
     Indication: ECZEMA
     Route: 061
     Dates: start: 20190318, end: 20190318

REACTIONS (5)
  - Disorientation [Recovering/Resolving]
  - Swelling face [Recovering/Resolving]
  - Pain [Recovering/Resolving]
  - Hypersensitivity [Recovering/Resolving]
  - Dyspnoea [Recovering/Resolving]

NARRATIVE: CASE EVENT DATE: 20190318
